FAERS Safety Report 5120593-9 (Version None)
Quarter: 2006Q4

REPORT INFORMATION
  Report Type: 
  Country: None (occurrence: None)
  Receive Date: 20061002
  Receipt Date: 20060919
  Transmission Date: 20070319
  Serious: Yes (Other)
  Sender: FDA-Public Use
  Company Number: 14830

PATIENT
  Age: 57 Year
  Sex: Female
  Weight: 46 kg

DRUGS (1)
  1. PACLITAXEL [Suspect]
     Dates: start: 20060817

REACTIONS (7)
  - DYSPNOEA [None]
  - ERYTHEMA [None]
  - FEELING HOT [None]
  - HYPERTENSION [None]
  - PAIN IN EXTREMITY [None]
  - PRURITUS [None]
  - TACHYCARDIA [None]
